FAERS Safety Report 4684573-X (Version None)
Quarter: 2005Q2

REPORT INFORMATION
  Report Type: 
  Country: None (occurrence: None)
  Receive Date: 20050531
  Receipt Date: 20050307
  Transmission Date: 20051028
  Serious: Yes (Hospitalization)
  Sender: FDA-Public Use
  Company Number: USA050392609

PATIENT
  Age: 60 Year
  Sex: Female

DRUGS (2)
  1. ZYPREXA [Suspect]
     Indication: BIPOLAR DISORDER
     Dosage: 20 MG DAY
  2. LITHIUM [Concomitant]

REACTIONS (2)
  - MANIA [None]
  - WHITE BLOOD CELL COUNT DECREASED [None]
